FAERS Safety Report 7670703 (Version 5)
Quarter: 2012Q4

REPORT INFORMATION
  Report Type: Report from Study
  Country: JP (occurrence: JP)
  Receive Date: 20101116
  Receipt Date: 20121004
  Transmission Date: 20130627
  Serious: Yes (Other)
  Sender: FDA-Public Use
  Company Number: PHHY2010JP74769

PATIENT
  Age: 85 Year
  Sex: Female
  Weight: 56 kg

DRUGS (14)
  1. ICL670A [Suspect]
     Indication: MYELODYSPLASTIC SYNDROME
     Dosage: 1000 mg daily
     Route: 048
     Dates: start: 20100701, end: 20100901
  2. DIOVAN [Concomitant]
     Dosage: 80 mg, UNK
     Route: 048
     Dates: start: 20100701
  3. CALFINA [Concomitant]
     Route: 048
     Dates: start: 20100701
  4. TOWAMIN [Concomitant]
     Dosage: 50 mg, UNK
     Route: 048
     Dates: start: 20100701
  5. EBASTEL [Concomitant]
     Dosage: 10 mg, UNK
     Route: 048
     Dates: start: 20100701
  6. LIPITOR [Concomitant]
  7. CELTECT [Concomitant]
     Dosage: 60 mg, UNK
     Route: 048
     Dates: start: 20100701
  8. ISCOTIN [Concomitant]
     Dosage: 300 mg, UNK
     Route: 048
     Dates: start: 20100701
  9. DAIPHEN [Concomitant]
     Dosage: 1 mg, UNK
     Route: 048
     Dates: start: 20100701
  10. ITRIZOLE [Concomitant]
     Dosage: 10 ml, UNK
     Route: 048
     Dates: start: 20100701
  11. FAMOSTAGINE [Concomitant]
     Dosage: 40 mg, UNK
     Route: 048
     Dates: start: 20100701
  12. MAGMITT [Concomitant]
     Dosage: 990 mg, UNK
     Route: 048
     Dates: start: 20100701
  13. FUROSEMIDE [Concomitant]
     Dosage: 40 mg, UNK
     Route: 048
     Dates: start: 20100701
  14. GLAKAY [Concomitant]
     Dosage: 45 mg, UNK
     Route: 048
     Dates: start: 20100701

REACTIONS (10)
  - Basophil count increased [Not Recovered/Not Resolved]
  - Infection [Not Recovered/Not Resolved]
  - Inflammation [Not Recovered/Not Resolved]
  - C-reactive protein increased [Unknown]
  - Thrombocytopenia [Not Recovered/Not Resolved]
  - Monocyte count increased [Not Recovered/Not Resolved]
  - Neutropenia [Not Recovered/Not Resolved]
  - Haemorrhagic diathesis [Not Recovered/Not Resolved]
  - Epigastric discomfort [Recovered/Resolved]
  - Fatigue [Unknown]
